FAERS Safety Report 5014341-0 (Version None)
Quarter: 2006Q2

REPORT INFORMATION
  Report Type: 
  Country: None (occurrence: None)
  Receive Date: 20060411
  Receipt Date: 20060208
  Transmission Date: 20061013
  Serious: No
  Sender: FDA-Public Use
  Company Number: A03200600787

PATIENT
  Sex: Male

DRUGS (1)
  1. UROXATRAL [Suspect]
     Dosage: 10 MG OD - ORAL
     Route: 048
     Dates: start: 20050101

REACTIONS (1)
  - HEART RATE DECREASED [None]
